FAERS Safety Report 6893537-7 (Version None)
Quarter: 2010Q3

REPORT INFORMATION
  Report Type: 
  Country: None (occurrence: None)
  Receive Date: 20100731
  Receipt Date: 20091006
  Transmission Date: 20110219
  Serious: No
  Sender: FDA-Public Use
  Company Number: US-PFIZER INC-2009260170

PATIENT
  Age: 74 Year
  Sex: Male

DRUGS (2)
  1. LIPITOR [Suspect]
     Dosage: UNK
  2. LEVITRA [Suspect]
     Dosage: UNK

REACTIONS (2)
  - BURNING SENSATION [None]
  - ERECTILE DYSFUNCTION [None]
